FAERS Safety Report 6188870-0 (Version None)
Quarter: 2009Q2

REPORT INFORMATION
  Report Type: 
  Country: None (occurrence: None)
  Receive Date: 20090513
  Receipt Date: 20090428
  Transmission Date: 20091009
  Serious: Yes (Other)
  Sender: FDA-Public Use
  Company Number: PL-GENENTECH-282660

PATIENT

DRUGS (5)
  1. ACTIVASE [Suspect]
     Indication: ARTERIAL THROMBOSIS
     Dosage: 5 MG, SINGLE
     Route: 013
  2. ACTIVASE [Suspect]
     Dosage: UNK MG/HR, CONTINUOUS
     Route: 013
  3. HEPARIN [Suspect]
     Indication: ARTERIAL THROMBOSIS
     Dosage: UNK
  4. HEPARIN [Concomitant]
     Indication: DRUG USE FOR UNKNOWN INDICATION
     Dosage: UNK
  5. ANTIPLATELET [Concomitant]
     Indication: DRUG USE FOR UNKNOWN INDICATION
     Dosage: UNK

REACTIONS (1)
  - SERUM SICKNESS [None]
